FAERS Safety Report 20723476 (Version 3)
Quarter: 2022Q3

REPORT INFORMATION
  Report Type: Report from Study
  Country: JP (occurrence: JP)
  Receive Date: 20220419
  Receipt Date: 20220729
  Transmission Date: 20221026
  Serious: No
  Sender: FDA-Public Use
  Company Number: JP-AMRYT PHARMACEUTICALS DAC-AEGR005832

PATIENT

DRUGS (11)
  1. JUXTAPID [Suspect]
     Active Substance: LOMITAPIDE MESYLATE
     Indication: Type IIa hyperlipidaemia
     Dosage: 2.5 MILLIGRAM, QD TWO HOURS AFTER DINNER
     Route: 048
     Dates: start: 20200916
  2. JUXTAPID [Suspect]
     Active Substance: LOMITAPIDE MESYLATE
     Dosage: 5 MILLIGRAM, TWO HOURS AFTER DINNER
     Dates: start: 20201013
  3. JUXTAPID [Suspect]
     Active Substance: LOMITAPIDE MESYLATE
     Dosage: 10 MILLIGRAM, TWO HOURS AFTER DINNER
     Dates: start: 20201110
  4. JUXTAPID [Suspect]
     Active Substance: LOMITAPIDE MESYLATE
     Dosage: 15 MILLIGRAM, TWO HOURS AFTER DINNER
     Dates: start: 20210406, end: 20210527
  5. JUXTAPID [Suspect]
     Active Substance: LOMITAPIDE MESYLATE
     Dosage: UNK
     Route: 048
     Dates: start: 20200916, end: 20210527
  6. LIVALO [Concomitant]
     Active Substance: PITAVASTATIN CALCIUM
     Indication: Hypercholesterolaemia
     Dosage: 4 MILLIGRAM, QD
     Route: 048
     Dates: start: 20191202, end: 20210528
  7. ZETIA [Concomitant]
     Active Substance: EZETIMIBE
     Indication: Hypercholesterolaemia
     Dosage: 10 MILLIGRAM, QD
     Route: 048
     Dates: start: 20190204
  8. ZETIA [Concomitant]
     Active Substance: EZETIMIBE
     Dosage: 15 MILLIGRAM, QD
     Route: 048
     Dates: start: 20190204, end: 20210528
  9. LORELCO [Concomitant]
     Active Substance: PROBUCOL
     Indication: Hypercholesterolaemia
     Dosage: UNK
  10. LORELCO [Concomitant]
     Active Substance: PROBUCOL
     Dosage: 360 MILLIGRAM, BID
     Route: 048
     Dates: start: 20201203, end: 20210528
  11. KAYWAN [Concomitant]
     Indication: Prophylaxis
     Dosage: 10 MILLIGRAM, QD
     Route: 048
     Dates: start: 20201211, end: 20210528

REACTIONS (1)
  - Therapeutic product effect incomplete [Unknown]
